FAERS Safety Report 5962108-9 (Version None)
Quarter: 2008Q4

REPORT INFORMATION
  Report Type: 
  Country: None (occurrence: None)
  Receive Date: 20081121
  Receipt Date: 20081110
  Transmission Date: 20090506
  Serious: Yes (Other)
  Sender: FDA-Public Use
  Company Number: CA-ASTRAZENECA-2008UW25545

PATIENT
  Age: 60 Year
  Sex: Male

DRUGS (5)
  1. CRESTOR [Suspect]
     Route: 048
     Dates: start: 20030201
  2. CRESTOR [Suspect]
     Route: 048
     Dates: start: 20071101
  3. CRESTOR [Suspect]
     Route: 048
  4. CRESTOR [Suspect]
     Route: 048
  5. OTHER CHOLESTEROL LOWERING AGENTS [Concomitant]

REACTIONS (10)
  - ABDOMINAL PAIN [None]
  - DEHYDRATION [None]
  - FEELING ABNORMAL [None]
  - MUSCLE CONTRACTIONS INVOLUNTARY [None]
  - MYALGIA [None]
  - NEPHROLITHIASIS [None]
  - OBSTRUCTION [None]
  - RENAL PAIN [None]
  - THIRST [None]
  - URETHRAL PAIN [None]
